FAERS Safety Report 7029675-8 (Version None)
Quarter: 2010Q4

REPORT INFORMATION
  Report Type: 
  Country: None (occurrence: None)
  Receive Date: 20101005
  Receipt Date: 20101005
  Transmission Date: 20110411
  Serious: No
  Sender: FDA-Public Use
  Company Number: None

PATIENT
  Sex: Male
  Weight: 106.5953 kg

DRUGS (6)
  1. MELOXICAM [Suspect]
     Indication: BACK PAIN
     Dosage: ONCE DAILY ORALLY
     Route: 048
     Dates: start: 20100929
  2. MELOXICAM [Suspect]
     Indication: MUSCULOSKELETAL PAIN
     Dosage: ONCE DAILY ORALLY
     Route: 048
     Dates: start: 20100929
  3. MELOXICAM [Suspect]
     Indication: NECK PAIN
     Dosage: ONCE DAILY ORALLY
     Route: 048
     Dates: start: 20100929
  4. MELOXICAM [Suspect]
     Indication: BACK PAIN
     Dosage: ONCE DAILY ORALLY
     Route: 048
     Dates: start: 20101002
  5. MELOXICAM [Suspect]
     Indication: MUSCULOSKELETAL PAIN
     Dosage: ONCE DAILY ORALLY
     Route: 048
     Dates: start: 20101002
  6. MELOXICAM [Suspect]
     Indication: NECK PAIN
     Dosage: ONCE DAILY ORALLY
     Route: 048
     Dates: start: 20101002

REACTIONS (14)
  - ABDOMINAL DISTENSION [None]
  - ABDOMINAL PAIN UPPER [None]
  - ANXIETY [None]
  - BACK PAIN [None]
  - BLOOD PRESSURE INCREASED [None]
  - CARDIAC FLUTTER [None]
  - CHEST PAIN [None]
  - CONSTIPATION [None]
  - FLATULENCE [None]
  - GASTROINTESTINAL PAIN [None]
  - INSOMNIA [None]
  - MOOD SWINGS [None]
  - MUSCULOSKELETAL STIFFNESS [None]
  - PAIN IN EXTREMITY [None]
